FAERS Safety Report 18249163 (Version 6)
Quarter: 2020Q4

REPORT INFORMATION
  Report Type: Spontaneous
  Country: US (occurrence: US)
  Receive Date: 20200909
  Receipt Date: 20201204
  Transmission Date: 20210113
  Serious: Yes (Other)
  Sender: FDA-Public Use
  Company Number: US-ABBVIE-20K-163-3553310-00

PATIENT
  Sex: Female

DRUGS (1)
  1. RINVOQ [Suspect]
     Active Substance: UPADACITINIB
     Indication: RHEUMATOID ARTHRITIS
     Route: 048

REACTIONS (30)
  - Foot operation [Unknown]
  - Spinal operation [Unknown]
  - Elective surgery [Unknown]
  - Artificial crown procedure [Unknown]
  - Arthropathy [Unknown]
  - Joint arthroplasty [Recovered/Resolved]
  - Dementia Alzheimer^s type [Unknown]
  - Shoulder operation [Unknown]
  - Self-consciousness [Unknown]
  - Spinal fusion surgery [Unknown]
  - Shoulder arthroplasty [Unknown]
  - Fear [Unknown]
  - Skin cancer [Unknown]
  - Procedural complication [Unknown]
  - Joint lock [Unknown]
  - Hip surgery [Unknown]
  - Hip arthroplasty [Unknown]
  - Tendon injury [Unknown]
  - Fungal infection [Unknown]
  - Viral infection [Unknown]
  - Nervous system disorder [Unknown]
  - Posture abnormal [Unknown]
  - Shoulder arthroplasty [Recovered/Resolved]
  - Trigger finger [Unknown]
  - Bacterial infection [Unknown]
  - Osteoarthritis [Recovered/Resolved]
  - Pain [Unknown]
  - Arthralgia [Unknown]
  - Foot deformity [Unknown]
  - Anxiety [Unknown]

NARRATIVE: CASE EVENT DATE: 201903
